FAERS Safety Report 9170126 (Version 1)
Quarter: 2013Q1

REPORT INFORMATION
  Report Type: Spontaneous
  Country: US (occurrence: None)
  Receive Date: 20130314
  Receipt Date: 20130314
  Transmission Date: 20140127
  Serious: Yes (Disabling)
  Sender: FDA-Public Use
  Company Number: None

PATIENT
  Age: 67 Year
  Sex: Female
  Weight: 99.79 kg

DRUGS (3)
  1. LEVAQUIN [Suspect]
     Indication: SINUSITIS
     Dates: start: 20130209, end: 20130218
  2. LEVAQUIN [Suspect]
     Indication: ABDOMINAL PAIN UPPER
     Dates: start: 20130209, end: 20130218
  3. LEVAQUIN [Suspect]
     Indication: NAUSEA
     Dates: start: 20130209, end: 20130218

REACTIONS (1)
  - Tendonitis [None]
